FAERS Safety Report 4293487-9 (Version None)
Quarter: 2004Q1

REPORT INFORMATION
  Report Type: 
  Country: None (occurrence: None)
  Receive Date: 20040126
  Receipt Date: 20031002
  Transmission Date: 20041129
  Serious: No
  Sender: FDA-Public Use
  Company Number: USA030844776

PATIENT
  Age: 66 Year
  Sex: Female
  Weight: 68 kg

DRUGS (7)
  1. FORTEO [Suspect]
     Indication: OSTEOPOROSIS
     Dosage: 20 UG/DAY
     Dates: start: 20030509, end: 20030911
  2. HYDROCHLOROTHIAZIDE [Concomitant]
  3. SYNTHROID [Concomitant]
  4. VITAMIN E [Concomitant]
  5. VITAMIN C [Concomitant]
  6. CALTRATE (CALCIUM CARBONATE) [Concomitant]
  7. PEPCID [Concomitant]

REACTIONS (8)
  - BACK PAIN [None]
  - DIZZINESS [None]
  - HYPOAESTHESIA [None]
  - MENTAL IMPAIRMENT [None]
  - MUSCLE CRAMP [None]
  - MUSCULAR WEAKNESS [None]
  - PAIN [None]
  - PARAESTHESIA [None]
